FAERS Safety Report 10447888 (Version 5)
Quarter: 2015Q1

REPORT INFORMATION
  Report Type: Spontaneous
  Country: AT (occurrence: AT)
  Receive Date: 20140911
  Receipt Date: 20150223
  Transmission Date: 20150720
  Serious: Yes (Death, Hospitalization, Other)
  Sender: FDA-Public Use
  Company Number: AT-GLAXOSMITHKLINE-B0755064A

PATIENT
  Age: 52 Year
  Sex: Female
  Weight: 32 kg

DRUGS (11)
  1. XEFO [Concomitant]
     Active Substance: LORNOXICAM
     Indication: SYSTEMIC LUPUS ERYTHEMATOSUS
     Route: 065
  2. SOLU-CORTEF [Concomitant]
     Active Substance: HYDROCORTISONE SODIUM SUCCINATE
     Indication: PREMEDICATION
     Dosage: UNK
     Route: 042
     Dates: start: 20140715
  3. APREDNISOLON [Concomitant]
     Active Substance: PREDNISOLONE
     Indication: SYSTEMIC LUPUS ERYTHEMATOSUS
     Route: 048
  4. FERRETAB [Concomitant]
     Indication: SYSTEMIC LUPUS ERYTHEMATOSUS
     Dosage: UNK, 1D
     Route: 065
  5. BENLYSTA [Suspect]
     Active Substance: BELIMUMAB
     Dosage: UNK
  6. CHOLECALCIFEROL [Concomitant]
     Active Substance: CHOLECALCIFEROL
     Indication: SYSTEMIC LUPUS ERYTHEMATOSUS
     Dosage: 40 GGT
     Route: 065
  7. MARCOUMAR [Concomitant]
     Active Substance: PHENPROCOUMON
     Route: 065
  8. CALCIUM CARBONATE + COLECALCIFEROL [Concomitant]
     Dosage: UNK, TID
     Route: 065
  9. BENLYSTA [Suspect]
     Active Substance: BELIMUMAB
     Indication: SYSTEMIC LUPUS ERYTHEMATOSUS
     Dosage: 340 MG, SINGLE
     Route: 042
     Dates: start: 20110906
  10. ULSAL [Concomitant]
     Indication: PREMEDICATION
     Dosage: 300 MG, UNK
     Route: 042
     Dates: start: 20140715
  11. NEXIUM [Concomitant]
     Active Substance: ESOMEPRAZOLE MAGNESIUM

REACTIONS (5)
  - Pulmonary embolism [Fatal]
  - Pneumonia [Recovered/Resolved]
  - Leukopenia [Recovered/Resolved]
  - Headache [Recovering/Resolving]
  - C-reactive protein increased [Recovered/Resolved]

NARRATIVE: CASE EVENT DATE: 20110906
